FAERS Safety Report 25989556 (Version 1)
Quarter: 2025Q4

REPORT INFORMATION
  Report Type: Spontaneous
  Country: SG (occurrence: SG)
  Receive Date: 20251103
  Receipt Date: 20251103
  Transmission Date: 20260117
  Serious: Yes (Other)
  Sender: MACLEODS
  Company Number: SG-MACLEODS PHARMA-MAC2025056034

PATIENT

DRUGS (1)
  1. ATORVASTATIN [Suspect]
     Active Substance: ATORVASTATIN
     Indication: Product used for unknown indication
     Dosage: STOP DATE 29 JAN
     Route: 065

REACTIONS (1)
  - Autoimmune hepatitis [Recovering/Resolving]
